FAERS Safety Report 5074944-4 (Version None)
Quarter: 2006Q3

REPORT INFORMATION
  Report Type: 
  Country: None (occurrence: None)
  Receive Date: 20060717
  Receipt Date: 20060110
  Transmission Date: 20061208
  Serious: No
  Sender: FDA-Public Use
  Company Number: 2006000099

PATIENT
  Age: 69 Year
  Sex: Male

DRUGS (11)
  1. TARCEVA [Suspect]
     Indication: LUNG NEOPLASM MALIGNANT
     Dosage: SEE IMAGE
     Route: 048
     Dates: start: 20050831, end: 20060101
  2. TARCEVA [Suspect]
     Indication: LUNG NEOPLASM MALIGNANT
     Dosage: SEE IMAGE
     Route: 048
     Dates: start: 20050831, end: 20060101
  3. INDOMETHACIN [Concomitant]
  4. GLYBURIDE [Concomitant]
  5. COMPAZINE [Concomitant]
  6. STOOL SOFTENER (DOCUSATE SODIUM) [Concomitant]
  7. ACETAMINOPHEN [Concomitant]
  8. OXYCONTIN [Concomitant]
  9. OXYCODONE (OXYCODONE) [Concomitant]
  10. VITAMIN E [Concomitant]
  11. METHOCARBAMOL [Concomitant]

REACTIONS (1)
  - TREMOR [None]
